FAERS Safety Report 10064764 (Version 2)
Quarter: 2014Q2

REPORT INFORMATION
  Report Type: Spontaneous
  Country: IT (occurrence: IT)
  Receive Date: 20140408
  Receipt Date: 20140507
  Transmission Date: 20141212
  Serious: Yes (Death, Other)
  Sender: FDA-Public Use
  Company Number: IT-TEVA-473333ISR

PATIENT
  Age: 48 Year
  Sex: Female

DRUGS (8)
  1. AMIKACIN [Suspect]
     Indication: PYREXIA
     Dosage: 750 MG DAILY
     Route: 042
     Dates: start: 20100917, end: 20100918
  2. TARGOSID - 400 MG/ 3 ML POLVERE E SOLVENTE PER SOLUZIONE INIETTABILE [Suspect]
     Indication: PYREXIA
     Dosage: 400 MG DAILY,POWDER AND SOLVENT FOR SOLUTION FOR INJECTION
     Route: 042
     Dates: start: 20100917, end: 20100918
  3. DIFLUCAN - 100 MG CAPSULE RIGIDE [Concomitant]
     Indication: ORAL CANDIDIASIS
     Dosage: 300 MG
  4. TAVOR - 2,5 MG COMPRESSE [Concomitant]
     Indication: PRODUCT USED FOR UNKNOWN INDICATION
     Dosage: 1 DF
     Route: 048
  5. TRUVADA - COMPRESSE RIVESTITE CON FILM [Concomitant]
     Indication: PRODUCT USED FOR UNKNOWN INDICATION
     Dosage: 1 DF
     Route: 048
  6. REYATAZ - 300 MG CAPSULE RIGIDE [Concomitant]
     Indication: PRODUCT USED FOR UNKNOWN INDICATION
     Dosage: 1 DF
     Route: 048
  7. MEPRAL - 40 MG POLVERE PER SOLUZIONE PER INFUSIONE [Concomitant]
     Indication: PRODUCT USED FOR UNKNOWN INDICATION
     Dosage: 1 DF,POWDER
  8. METHADONE HYDROCHLORIDE [Concomitant]
     Indication: PRODUCT USED FOR UNKNOWN INDICATION
     Dosage: 2 ML

REACTIONS (2)
  - Toxic skin eruption [Recovered/Resolved]
  - Death [Fatal]
